FAERS Safety Report 6496367-3 (Version None)
Quarter: 2009Q4

REPORT INFORMATION
  Report Type: 
  Country: None (occurrence: None)
  Receive Date: 20091125
  Receipt Date: 20081001
  Transmission Date: 20100525
  Serious: Yes (Hospitalization)
  Sender: FDA-Public Use
  Company Number: 2008BH010383

PATIENT
  Age: 6 Year
  Sex: Female

DRUGS (7)
  1. DIANEAL [Suspect]
     Indication: PERITONEAL DIALYSIS
     Dosage: 4.85 L;EVERY DAY;IP
     Route: 033
     Dates: start: 20040423
  2. CALCITRIOL [Concomitant]
  3. PHOSLO [Concomitant]
  4. BP MEDS [Concomitant]
  5. IRON [Concomitant]
  6. FOLIC ACID [Concomitant]
  7. OXYBUTYNIN [Concomitant]

REACTIONS (1)
  - PERITONITIS BACTERIAL [None]
